FAERS Safety Report 23437793 (Version 1)
Quarter: 2024Q1

REPORT INFORMATION
  Report Type: Spontaneous
  Country: FR (occurrence: FR)
  Receive Date: 20240124
  Receipt Date: 20240124
  Transmission Date: 20240409
  Serious: Yes (Death)
  Sender: FDA-Public Use
  Company Number: FR-AMGEN-FRASP2024011259

PATIENT
  Age: 78 Year
  Sex: Male

DRUGS (5)
  1. ADALIMUMAB [Suspect]
     Active Substance: ADALIMUMAB\ISOPROPYL ALCOHOL
     Indication: Crohn^s disease
     Dosage: 80 MILLIGRAM, QWK
     Route: 058
     Dates: start: 202109, end: 202309
  2. PENTASA [Concomitant]
     Active Substance: MESALAMINE
     Dosage: 500 MILLIGRAM, QD
     Route: 048
     Dates: start: 202109, end: 202309
  3. IRBESARTAN [Concomitant]
     Active Substance: IRBESARTAN
     Dosage: 300 MILLIGRAM, QD
     Route: 048
  4. AMLODIPINE BESYLATE [Concomitant]
     Active Substance: AMLODIPINE BESYLATE
     Dosage: 1 DOSAGE FORM, QD (10 MILLIGRAM)
     Route: 048
  5. DAPAGLIFLOZIN [Concomitant]
     Active Substance: DAPAGLIFLOZIN
     Dosage: 10 MILLIGRAM, QD
     Route: 048

REACTIONS (2)
  - Disseminated tuberculosis [Fatal]
  - Bronchopulmonary aspergillosis [Fatal]

NARRATIVE: CASE EVENT DATE: 20230901
